FAERS Safety Report 5712193-4 (Version None)
Quarter: 2008Q2

REPORT INFORMATION
  Report Type: 
  Country: None (occurrence: None)
  Receive Date: 20080422
  Receipt Date: 20080411
  Transmission Date: 20081010
  Serious: No
  Sender: FDA-Public Use
  Company Number: US-BAYER-200819803NA

PATIENT
  Age: 19 Year
  Sex: Female
  Weight: 76 kg

DRUGS (2)
  1. MIRENA [Suspect]
     Indication: CONTRACEPTION
     Route: 015
     Dates: start: 20070901
  2. SULFAMETH TRIMETHOTRIM NOS [Concomitant]
     Indication: FOLLICULITIS

REACTIONS (4)
  - CYST [None]
  - FOLLICULITIS [None]
  - MENSTRUATION IRREGULAR [None]
  - VAGINAL DISCHARGE [None]
